FAERS Safety Report 14945005 (Version 4)
Quarter: 2018Q2

REPORT INFORMATION
  Report Type: Spontaneous
  Country: JP (occurrence: JP)
  Receive Date: 20180529
  Receipt Date: 20180625
  Transmission Date: 20180711
  Serious: Yes (Life-Threatening, Hospitalization, Other)
  Sender: FDA-Public Use
  Company Number: JP-009507513-1805JPN002633J

PATIENT
  Age: 63 Year
  Sex: Male
  Weight: 56 kg

DRUGS (6)
  1. JANUVIA [Concomitant]
     Active Substance: SITAGLIPTIN PHOSPHATE
     Dosage: 50 MG, QD
     Route: 048
     Dates: start: 20171225, end: 20180401
  2. CIMETIDINE [Concomitant]
     Active Substance: CIMETIDINE
     Dosage: 200 MG, BID
     Route: 048
     Dates: start: 20171216, end: 20180301
  3. CALONAL [Concomitant]
     Active Substance: ACETAMINOPHEN
     Dosage: 500 MG, QID
     Route: 048
     Dates: start: 20180203
  4. KEYTRUDA [Suspect]
     Active Substance: PEMBROLIZUMAB
     Indication: LUNG ADENOCARCINOMA
     Dosage: 200 MG, Q3W
     Route: 041
     Dates: start: 20180222, end: 20180222
  5. PANVITAN [Concomitant]
     Dosage: 1 G, QD
     Route: 048
     Dates: start: 20171125, end: 20180222
  6. AZILVA [Concomitant]
     Active Substance: AZILSARTAN KAMEDOXOMIL
     Dosage: 40 MG, QD
     Route: 048
     Dates: start: 20180130

REACTIONS (1)
  - Interstitial lung disease [Recovering/Resolving]

NARRATIVE: CASE EVENT DATE: 20180227
